FAERS Safety Report 9018872 (Version 3)
Quarter: 2013Q2

REPORT INFORMATION
  Report Type: Spontaneous
  Country: US (occurrence: US)
  Receive Date: 20130118
  Receipt Date: 20130426
  Transmission Date: 20140414
  Serious: Yes (Other)
  Sender: FDA-Public Use
  Company Number: US-009507513-1301USA007571

PATIENT
  Age: 32 Year
  Sex: Female

DRUGS (2)
  1. PEGINTRON [Suspect]
     Indication: HEPATITIS C
     Dosage: UNK
     Dates: end: 201211
  2. REBETOL [Suspect]
     Indication: HEPATITIS C
     Dosage: UNK UNK, BID
     Route: 048
     Dates: end: 201211

REACTIONS (3)
  - Abortion spontaneous [Recovered/Resolved]
  - Fatigue [Recovered/Resolved]
  - Maternal exposure before pregnancy [Recovered/Resolved]
